FAERS Safety Report 7366488-1 (Version None)
Quarter: 2011Q1

REPORT INFORMATION
  Report Type: 
  Country: None (occurrence: None)
  Receive Date: 20110322
  Receipt Date: 20100225
  Transmission Date: 20110831
  Serious: Yes (Other)
  Sender: FDA-Public Use
  Company Number: US-BAYER-201015401NA

PATIENT
  Sex: Female
  Weight: 67 kg

DRUGS (2)
  1. AZITHROMYCIN [Concomitant]
     Indication: UPPER RESPIRATORY TRACT INFECTION
     Route: 048
     Dates: start: 20091222, end: 20091226
  2. DIENOGEST 0/2/3/0MG + ESTRADIOL VALERATE 3/2/2/1MG [Suspect]
     Indication: ORAL CONTRACEPTION
     Route: 048
     Dates: start: 20091122, end: 20100119

REACTIONS (2)
  - PREGNANCY [None]
  - ABORTION SPONTANEOUS [None]
